FAERS Safety Report 6493317-0 (Version None)
Quarter: 2009Q4

REPORT INFORMATION
  Report Type: 
  Country: None (occurrence: None)
  Receive Date: 20091214
  Receipt Date: 20091204
  Transmission Date: 20100525
  Serious: Yes (Hospitalization)
  Sender: FDA-Public Use
  Company Number: US-JNJFOC-20091202208

PATIENT
  Sex: Male
  Weight: 84.82 kg

DRUGS (12)
  1. SANDOZ FENTANYL TRANSDERMAL SYSTEM [Suspect]
     Indication: ARTHRALGIA
     Route: 062
  2. FOLIC ACID [Concomitant]
     Route: 048
  3. LISINOPRIL [Concomitant]
     Indication: BLOOD PRESSURE ABNORMAL
     Route: 048
  4. LOPRESSOR [Concomitant]
     Indication: BLOOD PRESSURE ABNORMAL
     Route: 048
  5. FLOMAX [Concomitant]
     Indication: BENIGN PROSTATIC HYPERPLASIA
     Route: 048
  6. ASPIRIN [Concomitant]
     Indication: CARDIAC DISORDER
     Route: 048
  7. CREON [Concomitant]
     Indication: PANCREATIC DISORDER
     Route: 048
  8. METFORMIN HCL [Concomitant]
     Indication: TYPE 2 DIABETES MELLITUS
     Route: 048
  9. MEVACOR [Concomitant]
     Indication: BLOOD CHOLESTEROL ABNORMAL
     Route: 048
  10. PRILOSEC [Concomitant]
     Indication: HIATUS HERNIA
     Route: 048
  11. REMERON [Concomitant]
     Indication: SLEEP DISORDER
     Dosage: AT NIGHT
     Route: 048
  12. VITAMIN B COMPLEX CAP [Concomitant]
     Indication: MEDICAL DIET
     Dosage: AT NIGHT
     Route: 048

REACTIONS (3)
  - CHEST PAIN [None]
  - CONSTIPATION [None]
  - WRONG TECHNIQUE IN DRUG USAGE PROCESS [None]
